FAERS Safety Report 24553661 (Version 1)
Quarter: 2024Q4

REPORT INFORMATION
  Report Type: Report from Study
  Country: US (occurrence: US)
  Receive Date: 20241028
  Receipt Date: 20241028
  Transmission Date: 20250115
  Serious: No
  Sender: ROCHE
  Company Number: US-ROCHE-3559864

PATIENT
  Age: 12 Year
  Sex: Male
  Weight: 44.7 kg

DRUGS (2)
  1. NUTROPIN AQ [Suspect]
     Active Substance: SOMATROPIN
     Indication: Hypopituitarism
     Dosage: DATE OF MOST RECENT DOSE: 03/NOV/2023, NUSPIN 20 MG PEN
     Route: 058
     Dates: start: 20230516
  2. NUTROPIN AQ [Suspect]
     Active Substance: SOMATROPIN
     Route: 058
     Dates: start: 20231102

REACTIONS (6)
  - Decreased appetite [Unknown]
  - Lower limb fracture [Unknown]
  - Eczema [Unknown]
  - Overweight [Unknown]
  - Insulin-like growth factor increased [Unknown]
  - Obsessive-compulsive disorder [Unknown]
